FAERS Safety Report 8238639-8 (Version None)
Quarter: 2012Q1

REPORT INFORMATION
  Report Type: 
  Country: None (occurrence: None)
  Receive Date: 20120309
  Receipt Date: 20100303
  Transmission Date: 20120608
  Serious: No
  Sender: FDA-Public Use
  Company Number: PHEH2010US00725

PATIENT
  Age: 18 Year
  Sex: Female
  Weight: 53.9 kg

DRUGS (3)
  1. ACETAMINOPHEN [Concomitant]
  2. MOTRIN [Concomitant]
  3. EXTAVIA [Suspect]
     Indication: MULTIPLE SCLEROSIS
     Dosage: 0.25 MG, QOD, SUBCUTANEOUS
     Route: 058
     Dates: start: 20091217

REACTIONS (3)
  - APPLICATION SITE DISCOLOURATION [None]
  - APPLICATION SITE DRYNESS [None]
  - APPLICATION SITE SWELLING [None]
